FAERS Safety Report 9768962 (Version 5)
Quarter: 2014Q2

REPORT INFORMATION
  Report Type: Spontaneous
  Country: IT (occurrence: None)
  Receive Date: 20131216
  Receipt Date: 20140618
  Transmission Date: 20141212
  Serious: Yes (Life-Threatening, Hospitalization)
  Sender: FDA-Public Use
  Company Number: AUR-APL-2013-10417

PATIENT
  Age: 21 Year
  Sex: Female
  Weight: 77 kg

DRUGS (1)
  1. LAMOTRIGINE [Suspect]
     Indication: PARTIAL SEIZURES
     Dosage: (100 MG, 1 D), ORAL
     Route: 048
     Dates: start: 20131111, end: 20131126

REACTIONS (14)
  - Stevens-Johnson syndrome [None]
  - Asthenia [None]
  - Toxic epidermal necrolysis [None]
  - Oropharyngeal pain [None]
  - Oedema [None]
  - Rash [None]
  - Palmar-plantar erythrodysaesthesia syndrome [None]
  - Toxic epidermal necrolysis [None]
  - Lymphadenopathy [None]
  - Conjunctival oedema [None]
  - Mucosal inflammation [None]
  - Pruritus [None]
  - Malaise [None]
  - Chest pain [None]
